FAERS Safety Report 6379619-7 (Version None)
Quarter: 2009Q3

REPORT INFORMATION
  Report Type: 
  Country: None (occurrence: None)
  Receive Date: 20090924
  Receipt Date: 20090924
  Transmission Date: 20100115
  Serious: Yes (Life-Threatening, Hospitalization)
  Sender: FDA-Public Use
  Company Number: None

PATIENT
  Age: 55 Year
  Sex: Female
  Weight: 87 kg

DRUGS (5)
  1. LISINOPRIL [Suspect]
     Indication: HYPERTENSION
     Dosage: 30 MG PO ONCE DAILY
     Route: 048
     Dates: start: 20081001, end: 20090505
  2. VALSARTAN  AND HYDROCHLOROTHIAZIDE [Suspect]
     Indication: HYPERTENSION
     Dosage: 160MG/12.5 MG PO QD
     Route: 048
     Dates: start: 20081001, end: 20090505
  3. FEXOFENADINE [Concomitant]
  4. HYDROCHLOROQUINE [Concomitant]
  5. ATORVASTATIN [Concomitant]

REACTIONS (1)
  - ANGIOEDEMA [None]
